FAERS Safety Report 6813415-9 (Version None)
Quarter: 2010Q3

REPORT INFORMATION
  Report Type: 
  Country: None (occurrence: None)
  Receive Date: 20100701
  Receipt Date: 20100628
  Transmission Date: 20110219
  Serious: Yes (Hospitalization)
  Sender: FDA-Public Use
  Company Number: FR-SANOFI-AVENTIS-2010SA037393

PATIENT
  Age: 87 Year
  Sex: Male

DRUGS (8)
  1. LANTUS [Suspect]
     Route: 058
     Dates: start: 20000101, end: 20090901
  2. ACEBUTOLOL HYDROCHLORIDE [Suspect]
     Route: 048
     Dates: end: 20090901
  3. APROVEL [Suspect]
     Route: 048
     Dates: end: 20090924
  4. NAFTIDROFURYL [Suspect]
     Route: 048
     Dates: end: 20090901
  5. MEMANTINE HCL [Suspect]
     Route: 048
     Dates: end: 20090901
  6. LANSOPRAZOLE [Concomitant]
     Route: 048
  7. PLAVIX [Concomitant]
     Indication: ARTERITIS
     Route: 048
  8. CORVASAL [Concomitant]
     Route: 048

REACTIONS (3)
  - BRADYCARDIA [None]
  - FALL [None]
  - ORTHOSTATIC HYPOTENSION [None]
